FAERS Safety Report 11033985 (Version 1)
Quarter: 2015Q2

REPORT INFORMATION
  Report Type: Spontaneous
  Country: TR (occurrence: TR)
  Receive Date: 20150415
  Receipt Date: 20150415
  Transmission Date: 20150821
  Serious: Yes (Other)
  Sender: FDA-Public Use
  Company Number: TR-SPECTRUM PHARMACEUTICALS, INC.-15-F-TR-00153

PATIENT
  Age: 57 Year
  Sex: Female

DRUGS (3)
  1. FLUOROURACIL. [Suspect]
     Active Substance: FLUOROURACIL
     Indication: RECTAL CANCER
     Dosage: 400 MG/M2, INTRAVENOUS BOLUS
     Route: 042
  2. FOLINIC ACID [Suspect]
     Active Substance: LEUCOVORIN
     Indication: RECTAL CANCER
     Dosage: 400 MG/M2, INFUSION FOR 2 HRS
     Route: 042
  3. FLUOROURACIL. [Suspect]
     Active Substance: FLUOROURACIL
     Dosage: 2400MG/M2, I.V INFUSION
     Route: 042

REACTIONS (4)
  - Eye pain [Unknown]
  - Photophobia [Unknown]
  - Conjunctivitis [Unknown]
  - Palmar-plantar erythrodysaesthesia syndrome [Unknown]
